FAERS Safety Report 12704818 (Version 1)
Quarter: 2016Q3

REPORT INFORMATION
  Report Type: Spontaneous
  Country: US (occurrence: US)
  Receive Date: 20160831
  Receipt Date: 20160831
  Transmission Date: 20161109
  Serious: Yes (Other)
  Sender: FDA-Public Use
  Company Number: US-BAYER-2016-167728

PATIENT
  Age: 46 Year
  Sex: Male

DRUGS (1)
  1. MAGNEVIST [Suspect]
     Active Substance: GADOPENTETATE DIMEGLUMINE
     Indication: LIVER SCAN
     Dosage: 20 MG, ONCE
     Route: 042
     Dates: start: 20160826, end: 20160826

REACTIONS (6)
  - Dyspnoea [Recovering/Resolving]
  - Cough [Recovering/Resolving]
  - Local swelling [Recovering/Resolving]
  - Anaphylactic reaction [Recovering/Resolving]
  - Choking [Recovering/Resolving]
  - Swelling face [Recovering/Resolving]

NARRATIVE: CASE EVENT DATE: 20160826
